FAERS Safety Report 5051546-7 (Version None)
Quarter: 2006Q3

REPORT INFORMATION
  Report Type: 
  Country: None (occurrence: None)
  Receive Date: 20060714
  Receipt Date: 20050822
  Transmission Date: 20061208
  Serious: Yes (Other)
  Sender: FDA-Public Use
  Company Number: PHBS2005CZ12482

PATIENT
  Age: 41 Year
  Sex: Male

DRUGS (7)
  1. CLODRONATE DISODIUM [Concomitant]
     Route: 065
     Dates: start: 20040901, end: 20041201
  2. CHEMOTHERAPEUTICS,OTHER [Concomitant]
     Dosage: HIGH-DOSAGE
     Route: 065
     Dates: start: 20041101
  3. ZOMETA [Suspect]
     Indication: MULTIPLE MYELOMA
     Dosage: 4 MG, 4-WEEK INTERVAL
     Route: 042
     Dates: start: 20050101, end: 20050701
  4. ZOMETA [Suspect]
     Dosage: 4 MG, 4 WEEK INTERVALS
     Route: 042
     Dates: start: 20040601
  5. CALTRATE [Concomitant]
     Route: 065
  6. MEGACE [Concomitant]
     Route: 065
  7. ANALGESICS [Concomitant]
     Route: 065

REACTIONS (13)
  - BONE DISORDER [None]
  - BONE PAIN [None]
  - BONE TRIMMING [None]
  - DENTAL DISCOMFORT [None]
  - GINGIVAL SWELLING [None]
  - IMPAIRED HEALING [None]
  - MYELOMA RECURRENCE [None]
  - OSTEONECROSIS [None]
  - PERIOSTITIS HYPERTROPHIC [None]
  - PRIMARY SEQUESTRUM [None]
  - SEQUESTRECTOMY [None]
  - SURGERY [None]
  - TOOTH EXTRACTION [None]
